FAERS Safety Report 5338811-0 (Version None)
Quarter: 2007Q2

REPORT INFORMATION
  Report Type: 
  Country: None (occurrence: None)
  Receive Date: 20070530
  Receipt Date: 20070521
  Transmission Date: 20071010
  Serious: Yes (Other)
  Sender: FDA-Public Use
  Company Number: US-JNJFOC-20070505387

PATIENT
  Sex: Female
  Weight: 90.72 kg

DRUGS (18)
  1. DURAGESIC-100 [Suspect]
     Indication: PAIN
     Route: 062
  2. LAMICTAL [Concomitant]
     Indication: AFFECTIVE DISORDER
     Route: 048
  3. SYNTHROID [Concomitant]
     Indication: THYROID DISORDER
     Route: 048
  4. FLEXERIL [Concomitant]
     Indication: MUSCLE RELAXANT THERAPY
     Route: 048
  5. LEXAPRO [Concomitant]
     Indication: DEPRESSION
     Route: 048
  6. PROMETHAZINE [Concomitant]
     Indication: NAUSEA
     Route: 048
  7. REQUIP [Concomitant]
     Indication: RESTLESS LEGS SYNDROME
     Route: 048
  8. SEROQUEL [Concomitant]
     Indication: SLEEP DISORDER
     Route: 048
  9. NEURONTIN [Concomitant]
     Indication: PAIN
     Route: 048
  10. REMERON [Concomitant]
     Indication: SLEEP DISORDER
     Route: 048
  11. ULTRAM [Concomitant]
     Indication: PAIN
     Route: 048
  12. RILUTEK [Concomitant]
     Indication: MIGRAINE
     Route: 048
  13. XANAX [Concomitant]
     Indication: ANXIETY
     Route: 048
  14. BENTYL [Concomitant]
     Indication: IRRITABLE BOWEL SYNDROME
     Route: 048
  15. RESTERIL [Concomitant]
     Indication: SLEEP DISORDER
     Route: 048
  16. LORTAB [Concomitant]
     Indication: PAIN
     Route: 048
  17. PHENERGAN HCL [Concomitant]
     Route: 048
  18. VALIUM [Concomitant]
     Route: 048

REACTIONS (8)
  - BLOOD PRESSURE INCREASED [None]
  - DYSURIA [None]
  - ERYTHEMA [None]
  - FEELING ABNORMAL [None]
  - OEDEMA PERIPHERAL [None]
  - RASH [None]
  - SWELLING FACE [None]
  - WRONG TECHNIQUE IN DRUG USAGE PROCESS [None]
